FAERS Safety Report 10508662 (Version 1)
Quarter: 2014Q3

REPORT INFORMATION
  Report Type: Spontaneous
  Country: US (occurrence: None)
  Receive Date: 20140915
  Receipt Date: 20140915
  Transmission Date: 20150326
  Serious: Yes (Other)
  Sender: FDA-Public Use
  Company Number: 2013-US-002785

PATIENT
  Age: 65 Year
  Sex: Female
  Weight: 71.7 kg

DRUGS (4)
  1. XYREM [Suspect]
     Active Substance: SODIUM OXYBATE
     Indication: NARCOLEPSY
     Route: 048
     Dates: start: 201302, end: 2013
  2. LISINOPRIL (LISINOPRIL) [Concomitant]
     Active Substance: LISINOPRIL
  3. SYNTHROID (LEVOTHYIROXINE SODIUM) [Concomitant]
  4. CHLORTHALIDONE (CHLORTALIDONE) [Concomitant]
     Active Substance: CHLORTHALIDONE

REACTIONS (9)
  - Hyperhidrosis [None]
  - Neutrophil count decreased [None]
  - Blood potassium decreased [None]
  - Lymphocyte count decreased [None]
  - Condition aggravated [None]
  - Heart rate increased [None]
  - Sleep apnoea syndrome [None]
  - Thyroid function test abnormal [None]
  - Hypertension [None]

NARRATIVE: CASE EVENT DATE: 2013
